FAERS Safety Report 12588110 (Version 7)
Quarter: 2017Q2

REPORT INFORMATION
  Report Type: Report from Study
  Country: BR (occurrence: BR)
  Receive Date: 20160725
  Receipt Date: 20170418
  Transmission Date: 20170830
  Serious: Yes (Hospitalization)
  Sender: FDA-Public Use
  Company Number: BR-BRISTOL-MYERS SQUIBB COMPANY-BMS-2016-044893

PATIENT
  Age: 60 Year
  Sex: Female
  Weight: 61 kg

DRUGS (22)
  1. NIVOLUMAB [Suspect]
     Active Substance: NIVOLUMAB
     Indication: PRODUCT USED FOR UNKNOWN INDICATION
     Dosage: 3 MG/KG, UNK
     Route: 065
     Dates: start: 20160314, end: 20160314
  2. NIVOLUMAB [Suspect]
     Active Substance: NIVOLUMAB
     Indication: PRODUCT USED FOR UNKNOWN INDICATION
     Dosage: 3 MG/KG, UNK
     Route: 065
     Dates: start: 20160328, end: 20160328
  3. CODEINE [Concomitant]
     Active Substance: CODEINE
     Indication: PRODUCT USED FOR UNKNOWN INDICATION
     Dosage: 90 MG, QD
     Route: 048
     Dates: start: 20121001
  4. NIVOLUMAB [Suspect]
     Active Substance: NIVOLUMAB
     Indication: PRODUCT USED FOR UNKNOWN INDICATION
     Dosage: 3 MG/KG, UNK
     Route: 065
     Dates: start: 20160229, end: 20160229
  5. NIVOLUMAB [Suspect]
     Active Substance: NIVOLUMAB
     Indication: PRODUCT USED FOR UNKNOWN INDICATION
     Dosage: 3 MG/KG, UNK
     Route: 065
     Dates: start: 20160412, end: 20160412
  6. TYLEX                              /00020001/ [Concomitant]
     Indication: PRODUCT USED FOR UNKNOWN INDICATION
     Dosage: 120 MG, QD
     Route: 048
     Dates: start: 20160314
  7. NIVOLUMAB [Suspect]
     Active Substance: NIVOLUMAB
     Indication: NON-SMALL CELL LUNG CANCER
     Dosage: 3 MG/KG, UNK
     Route: 065
     Dates: start: 20160115, end: 20160115
  8. NIVOLUMAB [Suspect]
     Active Substance: NIVOLUMAB
     Indication: PRODUCT USED FOR UNKNOWN INDICATION
     Dosage: 3 MG/KG, UNK
     Route: 065
     Dates: start: 20160201, end: 20160201
  9. NIVOLUMAB [Suspect]
     Active Substance: NIVOLUMAB
     Indication: PRODUCT USED FOR UNKNOWN INDICATION
     Dosage: 3 MG/KG, UNK
     Route: 065
     Dates: start: 20160215, end: 20160215
  10. NIVOLUMAB [Suspect]
     Active Substance: NIVOLUMAB
     Indication: PRODUCT USED FOR UNKNOWN INDICATION
     Dosage: 3 MG/KG, UNK
     Route: 065
     Dates: start: 20160712, end: 20160712
  11. NIVOLUMAB [Suspect]
     Active Substance: NIVOLUMAB
     Indication: PRODUCT USED FOR UNKNOWN INDICATION
     Dosage: 3 MG/KG, UNK
     Route: 065
     Dates: start: 20160531, end: 20160531
  12. ONDANSETRON [Concomitant]
     Active Substance: ONDANSETRON
     Indication: PRODUCT USED FOR UNKNOWN INDICATION
     Dosage: 24 MG, QD
     Route: 048
     Dates: start: 201602
  13. BISACODYL. [Concomitant]
     Active Substance: BISACODYL
     Indication: PRODUCT USED FOR UNKNOWN INDICATION
     Dosage: 10 MG, QD
     Route: 048
     Dates: start: 20160229
  14. NIVOLUMAB [Suspect]
     Active Substance: NIVOLUMAB
     Indication: PRODUCT USED FOR UNKNOWN INDICATION
     Dosage: 3 MG/KG, UNK
     Route: 065
     Dates: start: 20160426, end: 20160426
  15. NIVOLUMAB [Suspect]
     Active Substance: NIVOLUMAB
     Indication: PRODUCT USED FOR UNKNOWN INDICATION
     Dosage: 3 MG/KG, UNK
     Route: 065
     Dates: start: 20160614, end: 20160614
  16. ALLEGRA [Concomitant]
     Active Substance: FEXOFENADINE HYDROCHLORIDE
     Indication: PRODUCT USED FOR UNKNOWN INDICATION
     Dosage: 360 MG, QD
     Route: 048
     Dates: start: 201506
  17. DIPYRONE [Concomitant]
     Active Substance: DIPYRONE
     Indication: PRODUCT USED FOR UNKNOWN INDICATION
     Dosage: 4 G, QD
     Route: 048
     Dates: start: 20160314
  18. NIVOLUMAB [Suspect]
     Active Substance: NIVOLUMAB
     Indication: PRODUCT USED FOR UNKNOWN INDICATION
     Dosage: 3 MG/KG, UNK
     Route: 065
     Dates: start: 20160627, end: 20160627
  19. ALPRAZOLAM. [Concomitant]
     Active Substance: ALPRAZOLAM
     Indication: PRODUCT USED FOR UNKNOWN INDICATION
     Dosage: 500 MG, QD
     Route: 048
     Dates: start: 20100301
  20. OXYCONTIN [Concomitant]
     Active Substance: OXYCODONE HYDROCHLORIDE
     Indication: PRODUCT USED FOR UNKNOWN INDICATION
     Dosage: 30 MG, QD
     Route: 048
     Dates: start: 20160402, end: 20160422
  21. ATORVASTATIN [Concomitant]
     Active Substance: ATORVASTATIN
     Indication: PRODUCT USED FOR UNKNOWN INDICATION
     Dosage: 10 MG, QD
     Route: 048
     Dates: start: 20100301
  22. CLONAZEPAM. [Concomitant]
     Active Substance: CLONAZEPAM
     Indication: PRODUCT USED FOR UNKNOWN INDICATION
     Dosage: 2 MG, QD
     Route: 048
     Dates: start: 20100301

REACTIONS (1)
  - Myositis [Recovered/Resolved]

NARRATIVE: CASE EVENT DATE: 20160504
